FAERS Safety Report 12710262 (Version 2)
Quarter: 2016Q3

REPORT INFORMATION
  Report Type: Spontaneous
  Country: US (occurrence: US)
  Receive Date: 20160902
  Receipt Date: 20160902
  Transmission Date: 20161109
  Serious: Yes (Other)
  Sender: FDA-Public Use
  Company Number: US-ROCHE-1822253

PATIENT
  Sex: Female

DRUGS (1)
  1. XELODA [Suspect]
     Active Substance: CAPECITABINE
     Indication: COLON CANCER
     Dosage: 1 WEEK AND 1 WEEK OFF
     Route: 065

REACTIONS (4)
  - Neoplasm [Unknown]
  - Tumour marker increased [Unknown]
  - Fatigue [Unknown]
  - Nausea [Unknown]
